FAERS Safety Report 5836819-X (Version None)
Quarter: 2008Q3

REPORT INFORMATION
  Report Type: 
  Country: None (occurrence: None)
  Receive Date: 20080807
  Receipt Date: 20080723
  Transmission Date: 20090109
  Serious: Yes (Death)
  Sender: FDA-Public Use
  Company Number: FR-ROCHE-577698

PATIENT
  Sex: Male
  Weight: 83 kg

DRUGS (5)
  1. PEGASYS [Suspect]
     Route: 058
     Dates: start: 20071226
  2. RIBAVIRIN [Suspect]
     Route: 048
     Dates: start: 20071226
  3. DEROXAT [Concomitant]
     Dates: start: 20071226, end: 20080501
  4. VITAMINE C [Concomitant]
     Indication: ASTHENIA
     Dates: start: 20080103, end: 20080501
  5. DAFALGAN [Concomitant]
     Dates: start: 20071231, end: 20080501

REACTIONS (1)
  - DEATH [None]
